FAERS Safety Report 25660974 (Version 1)
Quarter: 2025Q3

REPORT INFORMATION
  Report Type: Spontaneous
  Country: CN (occurrence: CN)
  Receive Date: 20250808
  Receipt Date: 20250808
  Transmission Date: 20251020
  Serious: Yes (Other)
  Sender: SANDOZ
  Company Number: CN-002147023-NVSC2025CN124373

PATIENT
  Age: 34 Year
  Sex: Female
  Weight: 48 kg

DRUGS (3)
  1. TOBRADEX [Suspect]
     Active Substance: DEXAMETHASONE\TOBRAMYCIN
     Indication: Iritis
     Dosage: 0.05 ML, QID
     Route: 047
     Dates: start: 20250716, end: 20250716
  2. GANCICLOVIR [Concomitant]
     Active Substance: GANCICLOVIR
     Indication: Iritis
     Dosage: 0.05 ML, TID
     Route: 047
     Dates: start: 20250716, end: 20250716
  3. PRANOPROFEN [Concomitant]
     Active Substance: PRANOPROFEN
     Indication: Iritis
     Dosage: 0.05 ML, TID
     Route: 047
     Dates: start: 20250716, end: 20250716

REACTIONS (4)
  - Corneal opacity [Recovering/Resolving]
  - Keratitis [Recovering/Resolving]
  - Foreign body sensation in eyes [Recovering/Resolving]
  - Vision blurred [Recovering/Resolving]

NARRATIVE: CASE EVENT DATE: 20250716
